FAERS Safety Report 8987862 (Version 2)
Quarter: 2013Q1

REPORT INFORMATION
  Report Type: Spontaneous
  Country: US (occurrence: US)
  Receive Date: 20121227
  Receipt Date: 20130301
  Transmission Date: 20140127
  Serious: Yes (Hospitalization)
  Sender: FDA-Public Use
  Company Number: US-GLAXOSMITHKLINE-A1006466A

PATIENT
  Age: 63 Year
  Sex: Female

DRUGS (11)
  1. ADVAIR [Suspect]
     Indication: CHRONIC OBSTRUCTIVE PULMONARY DISEASE
     Dosage: 1PUFF PER DAY
     Route: 055
     Dates: start: 2005
  2. METFORMIN [Concomitant]
  3. GLIMEPIRIDE [Concomitant]
  4. RAMIPRIL [Concomitant]
  5. METHYLDOPA [Concomitant]
  6. CARVEDILOL [Concomitant]
  7. SPIRONOLACTONE [Concomitant]
  8. HYDROCODONE/APAP [Concomitant]
  9. CALCIUM [Concomitant]
  10. VITAMIN D [Concomitant]
  11. NEBULIZER [Concomitant]

REACTIONS (5)
  - Chronic obstructive pulmonary disease [Recovering/Resolving]
  - Drug ineffective [Unknown]
  - Underdose [Unknown]
  - Dyspnoea [Recovering/Resolving]
  - Overdose [Unknown]
